FAERS Safety Report 19191919 (Version 1)
Quarter: 2021Q2

REPORT INFORMATION
  Report Type: Spontaneous
  Country: IR (occurrence: IR)
  Receive Date: 20210429
  Receipt Date: 20210429
  Transmission Date: 20210717
  Serious: Yes (Hospitalization, Other)
  Sender: FDA-Public Use
  Company Number: IR-ALVOGEN-2021-ALVOGEN-116914

PATIENT
  Age: 5 Year
  Sex: Male

DRUGS (2)
  1. VINCRISTINE [Interacting]
     Active Substance: VINCRISTINE
     Indication: T-CELL TYPE ACUTE LEUKAEMIA
  2. VORICONAZOLE. [Suspect]
     Active Substance: VORICONAZOLE
     Indication: BRONCHOPULMONARY ASPERGILLOSIS
     Dosage: FROM THE 8TH SEPTEMBER (6 MG/KG, EVERY 12 H FOR ONE DAY AND THEN AT A DOSE OF 4 MG/KG)
     Route: 042
     Dates: start: 20180908

REACTIONS (7)
  - Drug interaction [Recovered/Resolved]
  - Toxicity to various agents [Recovered/Resolved]
  - Rash [Recovered/Resolved]
  - Dermatitis exfoliative generalised [Recovered/Resolved]
  - Rash macular [Recovered/Resolved]
  - Drug-induced liver injury [Unknown]
  - Product use issue [Unknown]
